FAERS Safety Report 10196805 (Version 1)
Quarter: 2014Q2

REPORT INFORMATION
  Report Type: Spontaneous
  Country: CN (occurrence: CN)
  Receive Date: 20140527
  Receipt Date: 20140527
  Transmission Date: 20141212
  Serious: Yes (Other)
  Sender: FDA-Public Use
  Company Number: CN-PFIZER INC-2014139912

PATIENT
  Sex: 0

DRUGS (2)
  1. VFEND [Suspect]
  2. SULPERAZON [Concomitant]

REACTIONS (1)
  - Epilepsy [Unknown]
